APPROVED DRUG PRODUCT: CHLORAPREP SINGLE SWABSTICK
Active Ingredient: CHLORHEXIDINE GLUCONATE; ISOPROPYL ALCOHOL
Strength: 2%;70% (1.75ML)
Dosage Form/Route: SWAB;TOPICAL
Application: N021555 | Product #002
Applicant: BECTON DICKINSON AND CO
Approved: May 10, 2005 | RLD: Yes | RS: Yes | Type: OTC